FAERS Safety Report 4988953-4 (Version None)
Quarter: 2006Q2

REPORT INFORMATION
  Report Type: 
  Country: None (occurrence: None)
  Receive Date: 20060425
  Receipt Date: 20060412
  Transmission Date: 20061013
  Serious: Yes (Hospitalization)
  Sender: FDA-Public Use
  Company Number: 2006S1003204

PATIENT
  Age: 79 Year
  Sex: Male

DRUGS (1)
  1. CLOZAPINE [Suspect]
     Indication: SCHIZOPHRENIA, PARANOID TYPE
     Dosage: 200 + 300 MG; QAM; ORAL
     Route: 048

REACTIONS (8)
  - CONDITION AGGRAVATED [None]
  - DELUSION [None]
  - DRUG INEFFECTIVE [None]
  - FAILURE TO THRIVE [None]
  - ORAL INTAKE REDUCED [None]
  - SCHIZOPHRENIA [None]
  - SCHIZOPHRENIA, PARANOID TYPE [None]
  - THERAPEUTIC RESPONSE UNEXPECTED WITH DRUG SUBSTITUTION [None]
